FAERS Safety Report 6189391-1 (Version None)
Quarter: 2009Q2

REPORT INFORMATION
  Report Type: 
  Country: None (occurrence: None)
  Receive Date: 20090512
  Receipt Date: 20090501
  Transmission Date: 20091009
  Serious: Yes (Death)
  Sender: FDA-Public Use
  Company Number: 1000006115

PATIENT
  Age: 60 Year
  Sex: Female

DRUGS (1)
  1. MILNACIPRAN              (             MILNACIPRAN HYDROCHLORIDE) [Suspect]
     Dosage: ORAL
     Route: 048

REACTIONS (1)
  - COMPLETED SUICIDE [None]
